FAERS Safety Report 6782537-3 (Version None)
Quarter: 2010Q2

REPORT INFORMATION
  Report Type: 
  Country: None (occurrence: None)
  Receive Date: 20100621
  Receipt Date: 20100617
  Transmission Date: 20101027
  Serious: Yes (Other)
  Sender: FDA-Public Use
  Company Number: ES-ROXANE LABORATORIES, INC.-2010-RO-00728RO

PATIENT
  Age: 72 Year

DRUGS (6)
  1. DIGOXIN [Suspect]
     Indication: ATRIAL FIBRILLATION
     Dates: start: 20050825, end: 20050901
  2. AMIODARONE [Suspect]
     Indication: ATRIAL FIBRILLATION
     Dates: start: 20060103, end: 20060130
  3. BISOPROLOL [Suspect]
     Indication: ATRIAL FIBRILLATION
     Dosage: 5 MG
     Dates: start: 20060130, end: 20090801
  4. BISOPROLOL [Suspect]
     Dosage: 7.5 MG
     Dates: start: 20090801, end: 20090912
  5. DILTIAZEM [Suspect]
     Indication: ATRIAL FIBRILLATION
     Dates: start: 20031101, end: 20060525
  6. DILTIAZEM [Suspect]
     Dosage: 7.5 MG
     Dates: start: 20090801, end: 20090912

REACTIONS (3)
  - BRADYCARDIA [None]
  - HYPOTHYROIDISM [None]
  - THERAPEUTIC AGENT TOXICITY [None]
